FAERS Safety Report 9665225 (Version 1)
Quarter: 2013Q4

REPORT INFORMATION
  Report Type: Spontaneous
  Country: NL (occurrence: NL)
  Receive Date: 20131103
  Receipt Date: 20131103
  Transmission Date: 20140711
  Serious: Yes (Other)
  Sender: FDA-Public Use
  Company Number: NL-MYLANLABS-2013S1023955

PATIENT
  Age: 29 Year
  Sex: Male

DRUGS (1)
  1. TERBINAFINE [Suspect]
     Indication: RASH
     Dosage: GEBRUIK NIET BEKEND
     Route: 048
     Dates: start: 2013, end: 20131008

REACTIONS (1)
  - Lichen planus [Not Recovered/Not Resolved]
